FAERS Safety Report 22532191 (Version 1)
Quarter: 2023Q2

REPORT INFORMATION
  Report Type: Spontaneous
  Country: FR (occurrence: FR)
  Receive Date: 20230607
  Receipt Date: 20230607
  Transmission Date: 20230722
  Serious: Yes (Hospitalization, Other)
  Sender: FDA-Public Use
  Company Number: FR-BRISTOL-MYERS SQUIBB COMPANY-2023-072123

PATIENT
  Age: 71 Year
  Sex: Male

DRUGS (2)
  1. GEMCITABINE [Interacting]
     Active Substance: GEMCITABINE
     Indication: Adenocarcinoma pancreas
     Dosage: 1000 MG/M2 (DISCONTINUED DURING 9TH CYCLE)
     Route: 065
     Dates: start: 201906, end: 202003
  2. PACLITAXEL [Interacting]
     Active Substance: PACLITAXEL
     Indication: Adenocarcinoma pancreas
     Dosage: 125 MILLIGRAM/SQ. METER
     Route: 065
     Dates: start: 201906, end: 202001

REACTIONS (4)
  - Neurotoxicity [Unknown]
  - Thrombotic microangiopathy [Unknown]
  - Drug interaction [Unknown]
  - Off label use [Unknown]
